FAERS Safety Report 7513849-3 (Version None)
Quarter: 2011Q2

REPORT INFORMATION
  Report Type: 
  Country: None (occurrence: None)
  Receive Date: 20110531
  Receipt Date: 20110520
  Transmission Date: 20111010
  Serious: Yes (Other)
  Sender: FDA-Public Use
  Company Number: PHFR2011GB03187

PATIENT
  Age: 53 Year
  Sex: Female

DRUGS (3)
  1. ZOLEDRONIC ACID [Suspect]
     Dosage: UNK
     Dates: start: 20110101
  2. XELODA [Suspect]
     Dosage: 1500 MG, BID
     Dates: start: 20110407, end: 20110421
  3. XELODA [Suspect]
     Dosage: 1500 MG, BID
     Dates: start: 20110428, end: 20110507

REACTIONS (3)
  - PALMAR-PLANTAR ERYTHRODYSAESTHESIA SYNDROME [None]
  - MOUTH ULCERATION [None]
  - BLISTER [None]
